FAERS Safety Report 23481204 (Version 1)
Quarter: 2024Q1

REPORT INFORMATION
  Report Type: Spontaneous
  Country: US (occurrence: None)
  Receive Date: 20240202
  Receipt Date: 20240202
  Transmission Date: 20240410
  Serious: Yes (Other)
  Sender: FDA-Public Use
  Company Number: None

PATIENT
  Age: 28 Year
  Sex: Female
  Weight: 65.25 kg

DRUGS (8)
  1. QELBREE [Suspect]
     Active Substance: VILOXAZINE HYDROCHLORIDE
     Indication: Attention deficit hyperactivity disorder
     Dosage: OTHER QUANTITY : 2 CAPSULE(S);?FREQUENCY : DAILY;?
     Route: 048
     Dates: start: 20240119, end: 20240129
  2. SPIRONOLACTONE [Concomitant]
  3. ESCITALOPRAM [Concomitant]
  4. gelbree [Concomitant]
  5. VITAMIN D3 [Concomitant]
     Active Substance: CHOLECALCIFEROL
  6. ALLEGRA [Concomitant]
     Active Substance: FEXOFENADINE HYDROCHLORIDE
  7. IBUPROFEN [Concomitant]
  8. famotodine [Concomitant]

REACTIONS (14)
  - Somnolence [None]
  - Anxiety [None]
  - Emotional disorder [None]
  - Heart rate increased [None]
  - Crying [None]
  - Anxiety [None]
  - Suicidal ideation [None]
  - Therapy cessation [None]
  - Withdrawal syndrome [None]
  - Headache [None]
  - Vomiting [None]
  - Pain [None]
  - Product communication issue [None]
  - Impaired work ability [None]

NARRATIVE: CASE EVENT DATE: 20240131
